FAERS Safety Report 23552285 (Version 2)
Quarter: 2024Q1

REPORT INFORMATION
  Report Type: Report from Study
  Country: GB (occurrence: GB)
  Receive Date: 20240222
  Receipt Date: 20240226
  Transmission Date: 20240410
  Serious: Yes (Other)
  Sender: FDA-Public Use
  Company Number: GB-002147023-NVSC2024GB037506

PATIENT
  Sex: Male

DRUGS (1)
  1. KESIMPTA [Suspect]
     Active Substance: OFATUMUMAB
     Indication: Multiple sclerosis
     Dosage: 20 MG/KG, QW (1ST INJECTION)
     Route: 058
     Dates: start: 20240213

REACTIONS (2)
  - Diplegia [Unknown]
  - Influenza like illness [Unknown]

NARRATIVE: CASE EVENT DATE: 20240213
